FAERS Safety Report 6377172-5 (Version None)
Quarter: 2009Q3

REPORT INFORMATION
  Report Type: 
  Country: None (occurrence: None)
  Receive Date: 20090921
  Receipt Date: 20090903
  Transmission Date: 20100115
  Serious: Yes (Other)
  Sender: FDA-Public Use
  Company Number: DSA_41604_2009

PATIENT
  Sex: Male

DRUGS (1)
  1. BUPROPION HCL [Suspect]
     Indication: DEPRESSION
     Dosage: (150 MG QD ORAL)
     Route: 048
     Dates: start: 20080124, end: 20080221

REACTIONS (3)
  - AGGRESSION [None]
  - AGITATION [None]
  - PERSONALITY CHANGE [None]
